FAERS Safety Report 6099924-1 (Version None)
Quarter: 2009Q1

REPORT INFORMATION
  Report Type: 
  Country: None (occurrence: None)
  Receive Date: 20090226
  Receipt Date: 20090211
  Transmission Date: 20090719
  Serious: Yes (Other)
  Sender: FDA-Public Use
  Company Number: DSA_33241_2009

PATIENT
  Sex: Male

DRUGS (3)
  1. LORAZEPAM [Suspect]
     Indication: ANXIETY
     Dosage: (1 MG QD)
     Dates: start: 20060101
  2. LORAZEPAM [Suspect]
     Indication: PANIC ATTACK
     Dosage: (1 MG QD)
     Dates: start: 20060101
  3. ALCOHOL (ALCOHOL - ETHANOL) [Suspect]
     Indication: DRUG USE FOR UNKNOWN INDICATION
     Dosage: (INCREASED ALCOHOL CONSUMPTION ORAL)
     Route: 048

REACTIONS (7)
  - DEPRESSION [None]
  - FATIGUE [None]
  - HEPATIC ENZYME ABNORMAL [None]
  - HEPATOMEGALY [None]
  - MUSCULAR WEAKNESS [None]
  - RESPIRATORY DEPRESSION [None]
  - TREMOR [None]
